FAERS Safety Report 7166297-2 (Version None)
Quarter: 2010Q4

REPORT INFORMATION
  Report Type: 
  Country: None (occurrence: None)
  Receive Date: 20101216
  Receipt Date: 20101210
  Transmission Date: 20110411
  Serious: Yes (Life-Threatening, Hospitalization)
  Sender: FDA-Public Use
  Company Number: SN-PFIZER INC-2010168806

PATIENT
  Age: 70 Year
  Sex: Female

DRUGS (1)
  1. TAHOR [Suspect]
     Dosage: 10 MG, 1X/DAY
     Route: 048
     Dates: start: 20091001, end: 20091001

REACTIONS (3)
  - HYPERURICAEMIA [None]
  - MYALGIA [None]
  - TRANSAMINASES INCREASED [None]
